FAERS Safety Report 18985611 (Version 1)
Quarter: 2021Q1

REPORT INFORMATION
  Report Type: Spontaneous
  Country: US (occurrence: US)
  Receive Date: 20210309
  Receipt Date: 20210309
  Transmission Date: 20210420
  Serious: No
  Sender: FDA-Public Use
  Company Number: NVSC2021US049216

PATIENT
  Age: 85 Year
  Sex: Female

DRUGS (1)
  1. AMITRIPTYLINE HCL SANDOZ [Suspect]
     Active Substance: AMITRIPTYLINE HYDROCHLORIDE
     Indication: PRODUCT USED FOR UNKNOWN INDICATION
     Route: 065

REACTIONS (4)
  - Headache [Unknown]
  - Tremor [Unknown]
  - Sleep disorder [Unknown]
  - Nervousness [Unknown]
